FAERS Safety Report 6239428-6 (Version None)
Quarter: 2009Q2

REPORT INFORMATION
  Report Type: 
  Country: None (occurrence: None)
  Receive Date: 20090618
  Receipt Date: 20090618
  Transmission Date: 20091009
  Serious: No
  Sender: FDA-Public Use
  Company Number: None

PATIENT
  Age: 40 Year
  Sex: Male
  Weight: 90.7194 kg

DRUGS (1)
  1. ZIACAM NASAL SPRAY I DON'T KNOW I DON'T KNOW [Suspect]
     Indication: HYPOSMIA
     Dates: start: 20050101

REACTIONS (4)
  - FEELING ABNORMAL [None]
  - HYPOSMIA [None]
  - ORAL DISORDER [None]
  - PAROSMIA [None]
